FAERS Safety Report 24681048 (Version 1)
Quarter: 2024Q4

REPORT INFORMATION
  Report Type: Spontaneous
  Country: US (occurrence: US)
  Receive Date: 20241129
  Receipt Date: 20241129
  Transmission Date: 20250114
  Serious: No
  Sender: SANOFI AVENTIS
  Company Number: US-SA-2024SA347102

PATIENT
  Sex: Female
  Weight: 161.4 kg

DRUGS (9)
  1. DUPIXENT [Suspect]
     Active Substance: DUPILUMAB
     Indication: Dermatitis atopic
     Dosage: 300 MG, QOW
     Route: 058
  2. ROSUVASTATIN [Concomitant]
     Active Substance: ROSUVASTATIN
  3. MONTELUKAST SODIUM [Concomitant]
     Active Substance: MONTELUKAST SODIUM
  4. CHLORZOXAZONE [Concomitant]
     Active Substance: CHLORZOXAZONE
  5. DULOXETINE HYDROCHLORIDE [Concomitant]
     Active Substance: DULOXETINE HYDROCHLORIDE
  6. ZTLIDO [Concomitant]
     Active Substance: LIDOCAINE
  7. PREGABALIN [Concomitant]
     Active Substance: PREGABALIN
  8. LOSARTAN AND HYDROCHLOROTHIAZIDE [Concomitant]
     Active Substance: HYDROCHLOROTHIAZIDE\LOSARTAN POTASSIUM
  9. FLUTICASONE PROPIONATE [Concomitant]
     Active Substance: FLUTICASONE PROPIONATE

REACTIONS (2)
  - Pain [Unknown]
  - Pruritus [Unknown]
